FAERS Safety Report 5405396-X (Version None)
Quarter: 2007Q3

REPORT INFORMATION
  Report Type: 
  Country: None (occurrence: None)
  Receive Date: 20070803
  Receipt Date: 20070731
  Transmission Date: 20080115
  Serious: Yes (Other)
  Sender: FDA-Public Use
  Company Number: GB-BOEHRINGER INGELHEIM PHARMACEUTICALS, INC.-2007-UK-02455UK

PATIENT
  Age: 70 Year
  Sex: Female
  Weight: 114 kg

DRUGS (13)
  1. MOBIC [Suspect]
     Route: 048
     Dates: start: 20070404, end: 20070606
  2. ACOMPLIA [Suspect]
     Indication: OBESITY
     Route: 048
     Dates: start: 20070307, end: 20070606
  3. ATROVENT [Concomitant]
     Indication: SARCOIDOSIS
     Route: 055
  4. FELDENE [Concomitant]
  5. LEVOTHYROXINE SODIUM [Concomitant]
     Indication: HYPOTHYROIDISM
     Route: 048
  6. METFORMIN HCL [Concomitant]
  7. MIZOLASTINE [Concomitant]
  8. MEMETASONE [Concomitant]
  9. NEDOCROMIL SODIUM [Concomitant]
  10. QVAR 40 [Concomitant]
     Route: 055
  11. SENNA [Concomitant]
  12. TEMAZEPAM [Concomitant]
  13. ZOPICLONE [Concomitant]
     Indication: INSOMNIA

REACTIONS (7)
  - BLOOD PRESSURE INCREASED [None]
  - CARDIAC FLUTTER [None]
  - DIARRHOEA [None]
  - EPISTAXIS [None]
  - FATIGUE [None]
  - HEART RATE INCREASED [None]
  - TREMOR [None]
